FAERS Safety Report 6305897-6 (Version None)
Quarter: 2009Q3

REPORT INFORMATION
  Report Type: 
  Country: None (occurrence: None)
  Receive Date: 20090812
  Receipt Date: 20090806
  Transmission Date: 20100115
  Serious: Yes (Hospitalization)
  Sender: FDA-Public Use
  Company Number: US-KINGPHARMUSA00001-K200900935

PATIENT
  Sex: Female

DRUGS (9)
  1. ALTACE [Suspect]
     Dosage: 2.5 MG, QD
     Route: 048
  2. TERCIAN [Suspect]
     Dosage: 10 GTT, QD
     Route: 048
  3. KARDEGIC [Suspect]
     Dosage: 160 MG, QD
     Route: 048
  4. NORSET [Suspect]
     Dosage: 45 MG, QD
     Route: 048
  5. NITRODERM [Suspect]
     Dosage: 5 MG, QD
     Route: 061
  6. SELOKEN [Suspect]
     Dosage: 150 MG, QD
     Route: 048
  7. DIFFU K [Concomitant]
     Dosage: 1800 MG, UNK
     Route: 048
  8. NULYTELY [Concomitant]
     Route: 048
  9. SPASFON [Concomitant]
     Dosage: 320 X 4 MG, PRN
     Route: 048

REACTIONS (7)
  - CARDIAC FAILURE [None]
  - CARDIAC MURMUR [None]
  - CHOLESTASIS [None]
  - DEEP VEIN THROMBOSIS [None]
  - OEDEMA PERIPHERAL [None]
  - RALES [None]
  - TACHYCARDIA [None]
